FAERS Safety Report 7168245-8 (Version None)
Quarter: 2010Q4

REPORT INFORMATION
  Report Type: 
  Country: None (occurrence: None)
  Receive Date: 20101216
  Receipt Date: 20101207
  Transmission Date: 20110411
  Serious: Yes (Hospitalization, Other)
  Sender: FDA-Public Use
  Company Number: US-ABBOTT-10P-163-0690351-00

PATIENT
  Sex: Female
  Weight: 95.34 kg

DRUGS (8)
  1. HUMIRA [Suspect]
     Indication: CROHN'S DISEASE
     Route: 058
     Dates: start: 20090101, end: 20100101
  2. HUMIRA [Suspect]
     Route: 058
     Dates: start: 20101116
  3. MORPHINE [Concomitant]
     Indication: PAIN
  4. ASPIRIN [Concomitant]
     Indication: PRODUCT USED FOR UNKNOWN INDICATION
  5. CELEXA [Concomitant]
     Indication: ANXIETY
  6. POTASSIUM CHLORIDE [Concomitant]
     Indication: PRODUCT USED FOR UNKNOWN INDICATION
  7. DILTIAZEM [Concomitant]
     Indication: HYPERTENSION
  8. CHOLESTYRAMINE [Concomitant]
     Indication: PRODUCT USED FOR UNKNOWN INDICATION

REACTIONS (10)
  - ABDOMINAL ADHESIONS [None]
  - ABDOMINAL PAIN [None]
  - ANAL FISSURE [None]
  - DIARRHOEA [None]
  - DRUG WITHDRAWAL SYNDROME [None]
  - EYE PAIN [None]
  - HERNIA [None]
  - INFECTION [None]
  - INTESTINAL OBSTRUCTION [None]
  - PHOTOPHOBIA [None]
